FAERS Safety Report 9554960 (Version 2)
Quarter: 2013Q4

REPORT INFORMATION
  Report Type: Report from Study
  Country: US (occurrence: US)
  Receive Date: 20130926
  Receipt Date: 20131127
  Transmission Date: 20140711
  Serious: Yes (Hospitalization)
  Sender: FDA-Public Use
  Company Number: US-ROCHE-1280716

PATIENT
  Age: 71 Year
  Sex: Female

DRUGS (7)
  1. MYCOPHENOLATE MOFETIL [Suspect]
     Indication: RENAL TRANSPLANT
     Route: 048
  2. TACROLIMUS [Suspect]
     Indication: RENAL TRANSPLANT
     Route: 065
     Dates: start: 20130516
  3. PEPCID [Concomitant]
  4. ASPRIN-EC [Concomitant]
  5. COLACE [Concomitant]
  6. LOPRESSOR [Concomitant]
  7. BACTRIM [Concomitant]

REACTIONS (2)
  - Urinary tract infection [Recovered/Resolved]
  - Complications of transplanted kidney [Unknown]
